FAERS Safety Report 20631522 (Version 1)
Quarter: 2022Q1

REPORT INFORMATION
  Report Type: Spontaneous
  Country: US (occurrence: None)
  Receive Date: 20220323
  Receipt Date: 20220323
  Transmission Date: 20220424
  Serious: No
  Sender: FDA-Public Use
  Company Number: None

PATIENT
  Age: 88 Year
  Sex: Female

DRUGS (1)
  1. CAPECITABINE [Suspect]
     Active Substance: CAPECITABINE
     Dosage: OTHER FREQUENCY : OTHER;?OTHER ROUTE : OTHER;?
     Route: 050

REACTIONS (5)
  - Rectal haemorrhage [None]
  - Gastric disorder [None]
  - Asthenia [None]
  - Fatigue [None]
  - Product dose omission issue [None]

NARRATIVE: CASE EVENT DATE: 20220323
